FAERS Safety Report 25599486 (Version 1)
Quarter: 2025Q3

REPORT INFORMATION
  Report Type: Spontaneous
  Country: US (occurrence: US)
  Receive Date: 20250724
  Receipt Date: 20250724
  Transmission Date: 20251020
  Serious: No
  Sender: ELI LILLY AND COMPANY
  Company Number: US-ELI_LILLY_AND_COMPANY-US202507011047

PATIENT
  Age: 60 Year
  Sex: Female

DRUGS (2)
  1. ZEPBOUND [Suspect]
     Active Substance: TIRZEPATIDE
     Indication: Weight control
     Route: 065
     Dates: start: 202504
  2. ZEPBOUND [Suspect]
     Active Substance: TIRZEPATIDE
     Route: 065
     Dates: start: 20250705

REACTIONS (4)
  - Neuropathy peripheral [Not Recovered/Not Resolved]
  - Pain of skin [Not Recovered/Not Resolved]
  - Dermatitis allergic [Not Recovered/Not Resolved]
  - Sensitive skin [Not Recovered/Not Resolved]

NARRATIVE: CASE EVENT DATE: 20250705
